FAERS Safety Report 20859416 (Version 1)
Quarter: 2022Q2

REPORT INFORMATION
  Report Type: Spontaneous
  Country: JP (occurrence: JP)
  Receive Date: 20220523
  Receipt Date: 20220523
  Transmission Date: 20220721
  Serious: Yes (Other)
  Sender: FDA-Public Use
  Company Number: JP-MSD-2204JPN003048J

PATIENT
  Age: 61 Year
  Sex: Female

DRUGS (2)
  1. STROMECTOL [Suspect]
     Active Substance: IVERMECTIN
     Indication: Acarodermatitis
     Dosage: 12 MILLIGRAM/KILOGRAM, QD
     Route: 048
     Dates: start: 20220425, end: 20220425
  2. STROMECTOL [Suspect]
     Active Substance: IVERMECTIN
     Dosage: 12 MILLIGRAM/KILOGRAM
     Route: 048
     Dates: start: 20220430, end: 20220430

REACTIONS (5)
  - Internal haemorrhage [Unknown]
  - Mazzotti reaction [Unknown]
  - Taste disorder [Unknown]
  - Localised oedema [Unknown]
  - Drug eruption [Unknown]

NARRATIVE: CASE EVENT DATE: 20220401
